FAERS Safety Report 10498605 (Version 3)
Quarter: 2014Q4

REPORT INFORMATION
  Report Type: Spontaneous
  Country: TR (occurrence: TR)
  Receive Date: 20141006
  Receipt Date: 20141027
  Transmission Date: 20150528
  Serious: Yes (Other)
  Sender: FDA-Public Use
  Company Number: TR-PFIZER INC-2014265745

PATIENT
  Age: 37 Year
  Sex: Male
  Weight: 105 kg

DRUGS (2)
  1. BETASERC [Concomitant]
     Active Substance: BETAHISTINE
     Indication: VERTIGO
     Dosage: UNK
  2. EFFEXOR XR [Suspect]
     Active Substance: VENLAFAXINE HYDROCHLORIDE
     Dosage: 37.5 MG, 1X/DAY
     Dates: start: 2014, end: 201410

REACTIONS (9)
  - Erectile dysfunction [Recovering/Resolving]
  - Hypoaesthesia oral [Recovered/Resolved]
  - Drug dependence [Unknown]
  - Therapeutic response unexpected [Unknown]
  - Feeling abnormal [Recovered/Resolved]
  - Pre-existing condition improved [Unknown]
  - Hypoaesthesia [Recovered/Resolved]
  - Tobacco user [Unknown]
  - Libido decreased [Recovering/Resolving]

NARRATIVE: CASE EVENT DATE: 2014
